FAERS Safety Report 4744541-6 (Version None)
Quarter: 2005Q3

REPORT INFORMATION
  Report Type: 
  Country: None (occurrence: None)
  Receive Date: 20050808
  Receipt Date: 20050203
  Transmission Date: 20060218
  Serious: Yes (Other)
  Sender: FDA-Public Use
  Company Number: 2005025334

PATIENT
  Age: 60 Year
  Sex: Male
  Weight: 113.3993 kg

DRUGS (11)
  1. NICOTROL [Suspect]
     Indication: SMOKING CESSATION THERAPY
     Dosage: 21 MG QD, TRANSDERMAL
     Route: 062
     Dates: start: 20050101
  2. NICOTROL [Suspect]
     Indication: SMOKING CESSATION THERAPY
     Dosage: 16 CARTRIDGES QS, INHALATION
     Dates: start: 20050101
  3. SERTRALINE HCL [Concomitant]
  4. ATENOLOL [Concomitant]
  5. CAPTOPRIL [Concomitant]
  6. CLONIDINE [Concomitant]
  7. HYDROXYCHLOROQUINE PHOSPHATE (HYDROXYCHLOROQUINE PHOSPHATE) [Concomitant]
  8. FENTANY (FENTANYL) [Concomitant]
  9. OLANZAPINE (OLANAZAPINE) [Concomitant]
  10. ZOLPIDEM TARTRATE (ZOLIPIDEM TARTRATE) [Concomitant]
  11. ALPRAZOLAM [Concomitant]

REACTIONS (6)
  - ABNORMAL BEHAVIOUR [None]
  - DEPENDENCE [None]
  - DEPRESSION [None]
  - DRUG WITHDRAWAL SYNDROME [None]
  - MEDICATION ERROR [None]
  - OVERDOSE [None]
